FAERS Safety Report 17028223 (Version 1)
Quarter: 2019Q4

REPORT INFORMATION
  Report Type: Report from Study
  Country: US (occurrence: US)
  Receive Date: 20191113
  Receipt Date: 20191113
  Transmission Date: 20200122
  Serious: Yes (Other)
  Sender: FDA-Public Use
  Company Number: US-JNJFOC-20180925751

PATIENT
  Sex: Female

DRUGS (25)
  1. IMBRUVICA [Suspect]
     Active Substance: IBRUTINIB
     Route: 048
  2. IMBRUVICA [Suspect]
     Active Substance: IBRUTINIB
     Dosage: 420 MG, QD
     Route: 048
  3. PROAIR HFA [Concomitant]
     Active Substance: ALBUTEROL SULFATE
     Dosage: UNK, PRN
  4. ACETYLSALICYLIC ACID [Concomitant]
     Active Substance: ASPIRIN
  5. ACETAMINOPHEN. [Concomitant]
     Active Substance: ACETAMINOPHEN
  6. LEVOTHYROXINE. [Concomitant]
     Active Substance: LEVOTHYROXINE
  7. LIPITOR [Concomitant]
     Active Substance: ATORVASTATIN CALCIUM
  8. MULTIVITAMINS [Concomitant]
     Active Substance: VITAMINS
  9. HYDROCODONE [Concomitant]
     Active Substance: HYDROCODONE
  10. ALLOPURINOL. [Concomitant]
     Active Substance: ALLOPURINOL
  11. SINGULAIR [Concomitant]
     Active Substance: MONTELUKAST SODIUM
  12. MUCINEX [Concomitant]
     Active Substance: GUAIFENESIN
  13. MYRBETRIQ [Concomitant]
     Active Substance: MIRABEGRON
  14. MARIJUANA [Concomitant]
     Active Substance: CANNABIS SATIVA SUBSP. INDICA TOP
  15. OXYTOCIN. [Concomitant]
     Active Substance: OXYTOCIN
  16. GLIMEPIRIDE. [Concomitant]
     Active Substance: GLIMEPIRIDE
  17. HYDROCHLOROTHIAZIDE. [Concomitant]
     Active Substance: HYDROCHLOROTHIAZIDE
  18. PANTOPRAZOLE [Concomitant]
     Active Substance: PANTOPRAZOLE
  19. CLARITIN [Concomitant]
     Active Substance: LORATADINE
  20. TOPROL XL [Concomitant]
     Active Substance: METOPROLOL SUCCINATE
  21. FLUTICASONE. [Concomitant]
     Active Substance: FLUTICASONE
  22. CEFUROXIME. [Concomitant]
     Active Substance: CEFUROXIME
  23. HYDROCODONE/ACETAMINOPHEN [Concomitant]
     Active Substance: ACETAMINOPHEN\HYDROCODONE
     Dosage: 5/325
  24. IMBRUVICA [Suspect]
     Active Substance: IBRUTINIB
     Indication: CHRONIC LYMPHOCYTIC LEUKAEMIA
     Route: 048
     Dates: start: 20180913, end: 20180918
  25. AMITRIPTYLINE [Concomitant]
     Active Substance: AMITRIPTYLINE

REACTIONS (8)
  - Pain in extremity [Not Recovered/Not Resolved]
  - Chronic kidney disease [Recovering/Resolving]
  - Myalgia [Not Recovered/Not Resolved]
  - Arthralgia [Not Recovered/Not Resolved]
  - White blood cell count increased [Not Recovered/Not Resolved]
  - Peripheral swelling [Not Recovered/Not Resolved]
  - Lacrimation increased [Not Recovered/Not Resolved]
  - Blood count abnormal [Unknown]
